FAERS Safety Report 23521386 (Version 1)
Quarter: 2024Q1

REPORT INFORMATION
  Report Type: Spontaneous
  Country: JP (occurrence: JP)
  Receive Date: 20240214
  Receipt Date: 20240214
  Transmission Date: 20240410
  Serious: Yes (Death, Other)
  Sender: FDA-Public Use
  Company Number: JP-TAKEDA-2024TJP002273

PATIENT
  Age: 8 Decade
  Sex: Male

DRUGS (1)
  1. VECTIBIX [Suspect]
     Active Substance: PANITUMUMAB
     Indication: Colorectal cancer
     Dosage: UNK UNK, Q2WEEKS
     Route: 041
     Dates: start: 20231001

REACTIONS (2)
  - Coronavirus infection [Unknown]
  - Pneumonia [Fatal]

NARRATIVE: CASE EVENT DATE: 20240101
